FAERS Safety Report 8975080 (Version 2)
Quarter: 2014Q2

REPORT INFORMATION
  Report Type: Report from Study
  Country: US (occurrence: US)
  Receive Date: 20121219
  Receipt Date: 20130810
  Transmission Date: 20141212
  Serious: Yes (Other)
  Sender: FDA-Public Use
  Company Number: US-BAXTER-2012BAX027866

PATIENT
  Sex: 0

DRUGS (5)
  1. CYCLOPHOSPHAMIDE FOR INJECTION, USP [Suspect]
     Indication: NON-HODGKIN^S LYMPHOMA
  2. CYCLOPHOSPHAMIDE FOR INJECTION, USP [Suspect]
  3. TOPOTECAN [Suspect]
     Indication: NON-HODGKIN^S LYMPHOMA
     Dosage: NG H/ML
  4. TOPOTECAN [Suspect]
     Dosage: NG H/ML
  5. TOPOTECAN [Suspect]
     Dosage: NG H/ML

REACTIONS (2)
  - Ventricular extrasystoles [Unknown]
  - Ventricular tachycardia [Unknown]
